FAERS Safety Report 21090680 (Version 4)
Quarter: 2022Q4

REPORT INFORMATION
  Report Type: Spontaneous
  Country: US (occurrence: US)
  Receive Date: 20220716
  Receipt Date: 20221011
  Transmission Date: 20230113
  Serious: No
  Sender: FDA-Public Use
  Company Number: US-SA-SAC20220714000092

PATIENT
  Age: 86 Year
  Sex: Female
  Weight: 79 kg

DRUGS (27)
  1. DUPIXENT [Suspect]
     Active Substance: DUPILUMAB
     Indication: Asthma
     Dosage: 300 MG, QOW
     Route: 058
     Dates: start: 20220525
  2. TYLENOL [Concomitant]
     Active Substance: ACETAMINOPHEN
     Dosage: UNK
  3. VITAMIN D3 [Concomitant]
     Active Substance: CHOLECALCIFEROL
     Dosage: 650 UNK
  4. OCUVITE LUTEIN + ZEAXANTHIN [Concomitant]
     Dosage: 15MG
  5. ZINC [Concomitant]
     Active Substance: ZINC
     Dosage: ELDERBERRY ZINC 90 MG-15MG LOZENGE
  6. CALCIUM CARBONATE [Concomitant]
     Active Substance: CALCIUM CARBONATE
     Dosage: 05MG
  7. CALCIUM CARBONATE [Concomitant]
     Active Substance: CALCIUM CARBONATE
  8. LORAZEPAM [Concomitant]
     Active Substance: LORAZEPAM
     Dosage: UNK
  9. FELODIPINE [Concomitant]
     Active Substance: FELODIPINE
     Dosage: UNK UNK, QD
  10. LOSARTAN [Concomitant]
     Active Substance: LOSARTAN
     Dosage: 10MG
  11. HYDROCHLOROTHIAZIDE [Concomitant]
     Active Substance: HYDROCHLOROTHIAZIDE
     Dosage: 10MG
  12. XOPENEX [Concomitant]
     Active Substance: LEVALBUTEROL HYDROCHLORIDE
  13. BENZONATATE [Concomitant]
     Active Substance: BENZONATATE
  14. MONTELUKAST SODIUM [Concomitant]
     Active Substance: MONTELUKAST SODIUM
     Dosage: 100MG
  15. FLUOXETINE [Concomitant]
     Active Substance: FLUOXETINE HYDROCHLORIDE
     Dosage: 10MG
  16. ATORVASTATIN CALCIUM [Concomitant]
     Active Substance: ATORVASTATIN CALCIUM
     Dosage: 10MG
  17. DICLOFENAC SODIUM [Concomitant]
     Active Substance: DICLOFENAC SODIUM
     Dosage: 10MG
  18. TRELEGY ELLIPTA [Concomitant]
     Active Substance: FLUTICASONE FUROATE\UMECLIDINIUM BROMIDE\VILANTEROL TRIFENATATE
     Dosage: 03MG
  19. EPIPEN [Concomitant]
     Active Substance: EPINEPHRINE
  20. TYLENOL ARTHRITIS PAIN [Concomitant]
     Active Substance: ACETAMINOPHEN
     Dosage: 650MG
  21. HERBALS\TURMERIC [Concomitant]
     Active Substance: HERBALS\TURMERIC
     Dosage: 450MG-50MG
  22. THERA ZINC ELDERBERRY [Concomitant]
     Dosage: 90 MG-15MG
  23. LOSARTAN AND HYDROCHLOROTHIAZIDE [Concomitant]
     Active Substance: HYDROCHLOROTHIAZIDE\LOSARTAN POTASSIUM
  24. EQUATE WOMEN^S 50 PLUS ONE DAILY [Concomitant]
  25. XOPENEX HFA [Concomitant]
     Active Substance: LEVALBUTEROL TARTRATE
  26. FLUOXETINE HYDROCHLORIDE [Concomitant]
     Active Substance: FLUOXETINE HYDROCHLORIDE
     Dosage: 10MG
  27. POTASSIUM [Concomitant]
     Active Substance: POTASSIUM

REACTIONS (4)
  - Contusion [Unknown]
  - Scab [Recovering/Resolving]
  - Vision blurred [Unknown]
  - Asthma [Unknown]

NARRATIVE: CASE EVENT DATE: 20220101
